FAERS Safety Report 19692268 (Version 2)
Quarter: 2021Q4

REPORT INFORMATION
  Report Type: Spontaneous
  Country: US (occurrence: US)
  Receive Date: 20210812
  Receipt Date: 20211231
  Transmission Date: 20220303
  Serious: No
  Sender: FDA-Public Use
  Company Number: US-KARYOPHARM-2021KPT001012

PATIENT

DRUGS (9)
  1. XPOVIO [Suspect]
     Active Substance: SELINEXOR
     Indication: Plasma cell myeloma
     Dosage: 40 MG, 2X/WEEK
     Route: 048
     Dates: start: 20210727, end: 20210828
  2. XPOVIO [Suspect]
     Active Substance: SELINEXOR
     Dosage: 40 MG, WEEKLY
     Route: 048
     Dates: start: 20210828, end: 20210908
  3. ACYCLOVIR [Concomitant]
     Active Substance: ACYCLOVIR
     Dosage: 200 MG
  4. AMLODIPINE BESYLATE [Concomitant]
     Active Substance: AMLODIPINE BESYLATE
     Dosage: 5 MG
  5. CALCITRIOL [Concomitant]
     Active Substance: CALCITRIOL
  6. CARVEDILOL [Concomitant]
     Active Substance: CARVEDILOL
  7. DEXAMETHASONE [Concomitant]
     Active Substance: DEXAMETHASONE
     Dosage: 4 MG
  8. ONDANSETRON [Concomitant]
     Active Substance: ONDANSETRON
     Dosage: 4 MG
  9. OLANZAPINE [Concomitant]
     Active Substance: OLANZAPINE

REACTIONS (10)
  - Somnolence [Not Recovered/Not Resolved]
  - Thirst [Unknown]
  - Malaise [Unknown]
  - Insomnia [Not Recovered/Not Resolved]
  - Hyperhidrosis [Unknown]
  - Asthenia [Unknown]
  - Decreased appetite [Not Recovered/Not Resolved]
  - Fatigue [Not Recovered/Not Resolved]
  - Platelet count decreased [Unknown]
  - Weight decreased [Unknown]

NARRATIVE: CASE EVENT DATE: 20210701
